FAERS Safety Report 6330426-0 (Version None)
Quarter: 2009Q3

REPORT INFORMATION
  Report Type: 
  Country: None (occurrence: None)
  Receive Date: 20090826
  Receipt Date: 20090826
  Transmission Date: 20100115
  Serious: Yes (Hospitalization)
  Sender: FDA-Public Use
  Company Number: None

PATIENT
  Sex: Male
  Weight: 88.6 kg

DRUGS (4)
  1. BEVACIZUMAB (RHUMAB VEGF) [Suspect]
     Dosage: 870 MG
  2. LEUCOVORIN CALCIUM [Suspect]
     Dosage: 1652 MG
  3. ELOXATIN [Suspect]
     Dosage: 351 MG
  4. FLUOROURACIL [Suspect]
     Dosage: 11564 MG

REACTIONS (4)
  - BLOOD POTASSIUM DECREASED [None]
  - DIARRHOEA [None]
  - HAEMOGLOBIN DECREASED [None]
  - INTESTINAL PERFORATION [None]
